FAERS Safety Report 19921803 (Version 1)
Quarter: 2021Q4

REPORT INFORMATION
  Report Type: Spontaneous
  Country: ES (occurrence: ES)
  Receive Date: 20211005
  Receipt Date: 20211005
  Transmission Date: 20220303
  Serious: Yes (Other)
  Sender: FDA-Public Use
  Company Number: ES-AMNEAL PHARMACEUTICALS-2021-AMRX-04031

PATIENT

DRUGS (2)
  1. TEMOZOLOMIDE [Suspect]
     Active Substance: TEMOZOLOMIDE
     Indication: Glioblastoma multiforme
     Dosage: UNK
     Route: 065
  2. IDROXIOLEIC ACID [Concomitant]
     Active Substance: IDROXIOLEIC ACID
     Indication: Glioblastoma multiforme
     Dosage: 12 GRAM, DAILY

REACTIONS (1)
  - Embolism [Unknown]
